FAERS Safety Report 17430018 (Version 1)
Quarter: 2020Q1

REPORT INFORMATION
  Report Type: Spontaneous
  Country: US (occurrence: US)
  Receive Date: 20200215
  Receipt Date: 20200215
  Transmission Date: 20200409
  Serious: Yes (Life-Threatening, Disabling)
  Sender: FDA-Public Use
  Company Number: None

PATIENT
  Age: 42 Year
  Sex: Female

DRUGS (1)
  1. GADAVIST [Suspect]
     Active Substance: GADOBUTROL

REACTIONS (10)
  - Renal pain [None]
  - Hepatic pain [None]
  - Burning sensation [None]
  - Dry eye [None]
  - Vision blurred [None]
  - Feeling abnormal [None]
  - Palpitations [None]
  - Eye irritation [None]
  - Dry skin [None]
  - Headache [None]

NARRATIVE: CASE EVENT DATE: 20200205
